FAERS Safety Report 13267098 (Version 1)
Quarter: 2017Q1

REPORT INFORMATION
  Report Type: Spontaneous
  Country: US (occurrence: US)
  Receive Date: 20170223
  Receipt Date: 20170223
  Transmission Date: 20170428
  Serious: No
  Sender: FDA-Public Use
  Company Number: None

PATIENT
  Age: 56 Year
  Sex: Female
  Weight: 59.4 kg

DRUGS (8)
  1. ALENDRONATE SODIUM TABLETS, USP [Suspect]
     Active Substance: ALENDRONATE SODIUM
     Indication: MENOPAUSE
     Dosage: ?          QUANTITY:4 TABLET(S);OTHER FREQUENCY:ONCE WEEKLY;?
     Route: 048
     Dates: start: 20170116, end: 20170220
  2. VIT B COMPLEX [Concomitant]
  3. ALENDRONATE SODIUM TABLETS, USP [Suspect]
     Active Substance: ALENDRONATE SODIUM
     Indication: OSTEOPOROSIS PROPHYLAXIS
     Dosage: ?          QUANTITY:4 TABLET(S);OTHER FREQUENCY:ONCE WEEKLY;?
     Route: 048
     Dates: start: 20170116, end: 20170220
  4. GABAPENTIN. [Concomitant]
     Active Substance: GABAPENTIN
  5. FISH OIL [Concomitant]
     Active Substance: FISH OIL
  6. VITAMIN D [Concomitant]
     Active Substance: CHOLECALCIFEROL
  7. VITAMIN C [Concomitant]
     Active Substance: ASCORBIC ACID
  8. LISINOPRIL. [Concomitant]
     Active Substance: LISINOPRIL

REACTIONS (1)
  - Sensation of foreign body [None]

NARRATIVE: CASE EVENT DATE: 20170215
